FAERS Safety Report 26069953 (Version 1)
Quarter: 2025Q4

REPORT INFORMATION
  Report Type: Spontaneous
  Country: US (occurrence: US)
  Receive Date: 20251120
  Receipt Date: 20251120
  Transmission Date: 20260118
  Serious: No
  Sender: CATALYST PHARMA
  Company Number: US-CATALYST PHARMACEUTICALS-US-CATA-25-01534

PATIENT
  Age: 14 Year
  Sex: Male
  Weight: 49.887 kg

DRUGS (8)
  1. AGAMREE [Suspect]
     Active Substance: VAMOROLONE
     Indication: Duchenne muscular dystrophy
     Dosage: 3.8 ML
     Route: 048
     Dates: start: 20240410, end: 2024
  2. AGAMREE [Suspect]
     Active Substance: VAMOROLONE
     Dosage: 3 ML
     Route: 048
     Dates: start: 20240417, end: 20250115
  3. AGAMREE [Suspect]
     Active Substance: VAMOROLONE
     Dosage: 3.8 ML DAILY
     Route: 048
     Dates: start: 20250115
  4. VITAMIN D3 [Concomitant]
     Active Substance: CHOLECALCIFEROL
     Indication: Hypovitaminosis
     Dosage: 1 ML DAILY
     Route: 048
  5. GUMMY MULTIVITAMIN [Concomitant]
     Indication: Hypovitaminosis
     Dosage: DAILY
     Route: 048
  6. EPLERENONE [Concomitant]
     Active Substance: EPLERENONE
     Indication: Cardiovascular event prophylaxis
     Dosage: 25 MG DAILY
     Route: 048
  7. LISINOPRIL [Concomitant]
     Active Substance: LISINOPRIL
     Indication: Cardiovascular event prophylaxis
     Dosage: 2.5 MG DAILY
     Route: 048
  8. EXONDYS 51 [Concomitant]
     Active Substance: ETEPLIRSEN
     Indication: Duchenne muscular dystrophy
     Dosage: ONCE WEEKLY
     Route: 042

REACTIONS (1)
  - Gait inability [Not Recovered/Not Resolved]

NARRATIVE: CASE EVENT DATE: 20251001
